FAERS Safety Report 24202248 (Version 2)
Quarter: 2024Q3

REPORT INFORMATION
  Report Type: Spontaneous
  Country: JP (occurrence: JP)
  Receive Date: 20240812
  Receipt Date: 20240815
  Transmission Date: 20241016
  Serious: Yes (Other)
  Sender: NOVARTIS
  Company Number: JP-002147023-NVSJ2024JP005890

PATIENT
  Age: 54 Year
  Sex: Male
  Weight: 75 kg

DRUGS (4)
  1. BEOVU [Suspect]
     Active Substance: BROLUCIZUMAB-DBLL
     Indication: Diabetic retinal oedema
     Dosage: 6 MG, LEFT EYE
     Route: 031
     Dates: start: 202311, end: 202311
  2. BEOVU [Suspect]
     Active Substance: BROLUCIZUMAB-DBLL
     Dosage: 6 MG, LEFT EYE
     Route: 031
     Dates: start: 20240228, end: 20240228
  3. KENACORT [Suspect]
     Active Substance: TRIAMCINOLONE
     Indication: Prophylaxis
     Dosage: UNK
     Route: 065
     Dates: start: 202110, end: 20240228
  4. TRIAMCINOLONE ACETONIDE [Concomitant]
     Active Substance: TRIAMCINOLONE ACETONIDE
     Indication: Diabetic retinal oedema
     Dosage: UNK, LEFT EYE
     Route: 047
     Dates: start: 20240228, end: 20240228

REACTIONS (3)
  - Hypotony of eye [Recovered/Resolved]
  - Eyelid ptosis [Unknown]
  - Eye pain [Recovered/Resolved]

NARRATIVE: CASE EVENT DATE: 20240228
